FAERS Safety Report 6913964-9 (Version None)
Quarter: 2010Q3

REPORT INFORMATION
  Report Type: 
  Country: None (occurrence: None)
  Receive Date: 20100805
  Receipt Date: 20100805
  Transmission Date: 20110219
  Serious: No
  Sender: FDA-Public Use
  Company Number: None

PATIENT
  Age: 65 Year
  Sex: Female
  Weight: 81.6475 kg

DRUGS (5)
  1. ANASTROZOLE [Suspect]
     Indication: BREAST CANCER
     Dosage: 0.5 MG DAILY PO
     Route: 048
     Dates: start: 20100725, end: 20100725
  2. ANASTROZOLE [Suspect]
     Indication: OESTROGEN RECEPTOR ASSAY POSITIVE
     Dosage: 0.5 MG DAILY PO
     Route: 048
     Dates: start: 20100725, end: 20100725
  3. CLONAZEPAM [Concomitant]
  4. FENTANYL-75 [Concomitant]
  5. CODEINE LIQUID [Concomitant]

REACTIONS (5)
  - ANXIETY [None]
  - DRUG HYPERSENSITIVITY [None]
  - PRODUCT SUBSTITUTION ISSUE [None]
  - REFUSAL OF TREATMENT BY PATIENT [None]
  - WRONG TECHNIQUE IN DRUG USAGE PROCESS [None]
